FAERS Safety Report 17531742 (Version 2)
Quarter: 2020Q1

REPORT INFORMATION
  Report Type: Spontaneous
  Country: US (occurrence: US)
  Receive Date: 20200312
  Receipt Date: 20200324
  Transmission Date: 20200409
  Serious: No
  Sender: FDA-Public Use
  Company Number: US-SHIRE-US202009037

PATIENT
  Age: 33 Year
  Weight: 77.55 kg

DRUGS (3)
  1. VYVANSE [Suspect]
     Active Substance: LISDEXAMFETAMINE DIMESYLATE
     Indication: ANXIETY
     Dosage: 50 MILLIGRAM, 1X/DAY:QD
     Route: 065
     Dates: start: 20200306
  2. VYVANSE [Suspect]
     Active Substance: LISDEXAMFETAMINE DIMESYLATE
     Indication: ATTENTION DEFICIT/HYPERACTIVITY DISORDER
     Dosage: 30 MILLIGRAM, 1X/DAY:QD
     Route: 065
     Dates: start: 20200206, end: 20200305
  3. VYVANSE [Suspect]
     Active Substance: LISDEXAMFETAMINE DIMESYLATE
     Indication: DEPRESSION

REACTIONS (3)
  - Product physical issue [Unknown]
  - Somnolence [Unknown]
  - Therapeutic response shortened [Unknown]
